FAERS Safety Report 9224631 (Version 1)
Quarter: 2013Q1

REPORT INFORMATION
  Report Type: Spontaneous
  Country: US (occurrence: None)
  Receive Date: 20120917
  Receipt Date: 20120917
  Transmission Date: 20140127
  Serious: Yes (Hospitalization)
  Sender: FDA-Public Use
  Company Number: FK201102755

PATIENT
  Age: 67 Year
  Sex: Female
  Weight: 89.5 kg

DRUGS (2)
  1. CISPLATIN [Suspect]
     Indication: LUNG CARCINOMA CELL TYPE UNSPECIFIED STAGE IV
     Route: 042
     Dates: start: 20111013
  2. ETOPOSIDE [Suspect]
     Indication: CHEMOTHERAPY
     Route: 042
     Dates: start: 20111031, end: 20111104

REACTIONS (2)
  - Neutropenia [None]
  - Blood creatinine increased [None]
